FAERS Safety Report 19460323 (Version 1)
Quarter: 2021Q2

REPORT INFORMATION
  Report Type: Report from Study
  Country: CA (occurrence: CA)
  Receive Date: 20210625
  Receipt Date: 20210625
  Transmission Date: 20210717
  Serious: Yes (Other)
  Sender: FDA-Public Use
  Company Number: CA-CELLTRION INC.-2021CA008005

PATIENT

DRUGS (1)
  1. TRUXIMA [Suspect]
     Active Substance: RITUXIMAB-ABBS
     Indication: RHEUMATOID ARTHRITIS
     Dosage: 1000 MG, FREQUENCY: INFUSION 2
     Route: 042
     Dates: start: 20210525

REACTIONS (2)
  - Rheumatoid arthritis [Recovered/Resolved]
  - Insomnia [Recovered/Resolved]
